FAERS Safety Report 11270936 (Version 1)
Quarter: 2015Q3

REPORT INFORMATION
  Report Type: Spontaneous
  Country: US (occurrence: US)
  Receive Date: 20150714
  Receipt Date: 20150714
  Transmission Date: 20151125
  Serious: No
  Sender: FDA-Public Use
  Company Number: GXBR2015US001475

PATIENT
  Sex: Female

DRUGS (1)
  1. LEUPROLIDE ACETATE. [Suspect]
     Active Substance: LEUPROLIDE ACETATE
     Indication: IN VITRO FERTILISATION
     Dosage: 20 U, UNK
     Route: 065
     Dates: start: 20150517, end: 20150527

REACTIONS (2)
  - Ovarian cyst [Unknown]
  - Drug ineffective [Unknown]
